FAERS Safety Report 9293015 (Version 1)
Quarter: 2013Q2

REPORT INFORMATION
  Report Type: Spontaneous
  Country: US (occurrence: None)
  Receive Date: 20130515
  Receipt Date: 20130515
  Transmission Date: 20140414
  Serious: Yes (Other)
  Sender: FDA-Public Use
  Company Number: None

PATIENT
  Age: 56 Year
  Sex: Female
  Weight: 127.01 kg

DRUGS (5)
  1. OMNITROPE [Suspect]
     Indication: HYPOPITUITARISM
     Route: 058
     Dates: start: 201208
  2. FUROSEMIDE [Concomitant]
  3. ALPRAZOLAM [Concomitant]
  4. SIMVASTATIN [Concomitant]
  5. LEVOTHYROXINE [Suspect]

REACTIONS (1)
  - Intraocular pressure increased [None]
